FAERS Safety Report 4350526-4 (Version None)
Quarter: 2004Q2

REPORT INFORMATION
  Report Type: 
  Country: None (occurrence: None)
  Receive Date: 20040427
  Receipt Date: 20040422
  Transmission Date: 20050107
  Serious: Yes (Disabling)
  Sender: FDA-Public Use
  Company Number: STA-AE-04-MTX-146

PATIENT
  Age: 54 Year
  Sex: Male

DRUGS (5)
  1. METHOTREXATE [Suspect]
     Dosage: 17.5 MG 1X PER 1 WK,ORAL
     Route: 048
     Dates: start: 20020213
  2. ENBREL [Suspect]
     Dosage: 25 MG 2X PER 1 WK, SC
     Route: 058
     Dates: start: 20021203
  3. PREDNISONE [Suspect]
     Dosage: 10 MG 1X PER 1 DAY, ORAL
     Route: 048
     Dates: start: 20011226
  4. FOLIC ACID [Concomitant]
  5. ULTRACET [Concomitant]

REACTIONS (5)
  - ARTHRALGIA [None]
  - ARTHROPATHY [None]
  - ASEPTIC NECROSIS BONE [None]
  - GROIN PAIN [None]
  - JOINT RANGE OF MOTION DECREASED [None]
